FAERS Safety Report 8470143-4 (Version None)
Quarter: 2012Q2

REPORT INFORMATION
  Report Type: 
  Country: None (occurrence: None)
  Receive Date: 20120627
  Receipt Date: 20120620
  Transmission Date: 20120825
  Serious: Yes (Hospitalization, Other)
  Sender: FDA-Public Use
  Company Number: AU-BRISTOL-MYERS SQUIBB COMPANY-16640120

PATIENT
  Age: 72 Year
  Sex: Female

DRUGS (5)
  1. PREDNISOLONE [Concomitant]
  2. ORENCIA [Suspect]
     Indication: RHEUMATOID ARTHRITIS
     Route: 042
     Dates: start: 20080825, end: 20120430
  3. KARVEA [Concomitant]
  4. MORPHINE SULFATE [Concomitant]
  5. METHOTREXATE [Concomitant]

REACTIONS (3)
  - LUNG NEOPLASM MALIGNANT [None]
  - PNEUMOTHORAX [None]
  - PNEUMONIA [None]
